FAERS Safety Report 9184754 (Version 1)
Quarter: 2013Q1

REPORT INFORMATION
  Report Type: Spontaneous
  Country: JP (occurrence: JP)
  Receive Date: 20130325
  Receipt Date: 20130325
  Transmission Date: 20140127
  Serious: Yes (Hospitalization)
  Sender: FDA-Public Use
  Company Number: JP-BRISTOL-MYERS SQUIBB COMPANY-18699256

PATIENT
  Sex: 0

DRUGS (1)
  1. TAXOL [Suspect]
     Dosage: 1DF: DOSE OF 360 MG/BODY

REACTIONS (2)
  - Hypoaesthesia [Unknown]
  - Oral disorder [Unknown]
